FAERS Safety Report 12281268 (Version 1)
Quarter: 2016Q2

REPORT INFORMATION
  Report Type: Spontaneous
  Country: US (occurrence: None)
  Receive Date: 20160418
  Receipt Date: 20160418
  Transmission Date: 20160815
  Serious: Yes (Other)
  Sender: FDA-Public Use
  Company Number: None

PATIENT
  Age: 43 Year
  Sex: Female
  Weight: 54.7 kg

DRUGS (2)
  1. FLUOXETINE 10MG CAP GENERIC FOR, 10 MG 68645-0131-54 FLUOXETINE 10MG CAP [Suspect]
     Active Substance: FLUOXETINE HYDROCHLORIDE
     Indication: DEPRESSION
     Dosage: 4 CAPSULE(S) IN THE MORNING TAKEN BY MOUTH
     Route: 048
     Dates: start: 20160413
  2. FLUOXETINE 10MG CAP GENERIC FOR, 10 MG 68645-0131-54 FLUOXETINE 10MG CAP [Suspect]
     Active Substance: FLUOXETINE HYDROCHLORIDE
     Indication: ANXIETY
     Dosage: 4 CAPSULE(S) IN THE MORNING TAKEN BY MOUTH
     Route: 048
     Dates: start: 20160413

REACTIONS (6)
  - Bone pain [None]
  - Body temperature fluctuation [None]
  - Influenza like illness [None]
  - Cough [None]
  - Myalgia [None]
  - Sneezing [None]

NARRATIVE: CASE EVENT DATE: 20160415
